FAERS Safety Report 8440117-8 (Version None)
Quarter: 2012Q2

REPORT INFORMATION
  Report Type: 
  Country: None (occurrence: None)
  Receive Date: 20120615
  Receipt Date: 20120613
  Transmission Date: 20120825
  Serious: Yes (Death, Hospitalization)
  Sender: FDA-Public Use
  Company Number: JP-EISAI INC-E2090-02163-SPO-JP

PATIENT
  Age: 48 Year
  Sex: Male

DRUGS (3)
  1. LEXIN [Suspect]
     Dosage: UNKNOWN
     Route: 048
  2. ZONISAMIDE [Suspect]
     Dosage: UNKNOWN
     Route: 048
  3. VALPROATE SODIUM [Suspect]
     Dosage: UNKNOWN
     Route: 048

REACTIONS (2)
  - PANCYTOPENIA [None]
  - SEPSIS [None]
